FAERS Safety Report 7772908-0 (Version None)
Quarter: 2011Q3

REPORT INFORMATION
  Report Type: 
  Country: None (occurrence: None)
  Receive Date: 20110922
  Receipt Date: 20110914
  Transmission Date: 20111222
  Serious: Yes (Hospitalization, Other)
  Sender: FDA-Public Use
  Company Number: PHHY2011CA56555

PATIENT
  Sex: Female

DRUGS (3)
  1. SANDOSTATIN [Suspect]
     Indication: CARCINOID TUMOUR PULMONARY
     Dosage: UNK
     Route: 058
  2. SANDOSTATIN [Suspect]
     Dosage: 500 UG, TID
     Route: 058
  3. AFINITOR [Suspect]
     Indication: CARCINOID TUMOUR PULMONARY
     Dosage: 10 MG, QD
     Route: 048
     Dates: start: 20110706, end: 20110803

REACTIONS (4)
  - STOMATITIS [None]
  - LUNG INFILTRATION [None]
  - HYPOXIA [None]
  - DYSPNOEA [None]
